FAERS Safety Report 10154134 (Version 1)
Quarter: 2014Q2

REPORT INFORMATION
  Report Type: Spontaneous
  Country: US (occurrence: None)
  Receive Date: 20140505
  Receipt Date: 20140505
  Transmission Date: 20141212
  Serious: No
  Sender: FDA-Public Use
  Company Number: None

PATIENT
  Age: 55 Year
  Sex: Male
  Weight: 77.7 kg

DRUGS (1)
  1. INTRON A [Suspect]
     Dates: end: 20130906

REACTIONS (1)
  - Onychomadesis [None]
